FAERS Safety Report 23935545 (Version 2)
Quarter: 2024Q2

REPORT INFORMATION
  Report Type: Spontaneous
  Country: FR (occurrence: FR)
  Receive Date: 20240604
  Receipt Date: 20240606
  Transmission Date: 20240716
  Serious: Yes (Death, Hospitalization)
  Sender: FDA-Public Use
  Company Number: FR-ROCHE-3310637

PATIENT
  Age: 45 Year
  Sex: Male
  Weight: 51 kg

DRUGS (22)
  1. CARBOPLATIN [Suspect]
     Active Substance: CARBOPLATIN
     Indication: Non-small cell lung cancer metastatic
     Dosage: ON 07/MAR/2023, RECEIVED MOST RECENT DOSE 900 MG OF CARBOPLATIN PRIOR TO AE AND (SAE).
     Route: 042
     Dates: start: 20230214
  2. PEMETREXED [Suspect]
     Active Substance: PEMETREXED
     Indication: Non-small cell lung cancer metastatic
     Dosage: ON 07/MAR/2023, RECEIVED MOST RECENT DOSE 800 MG OF PEMETREXED PRIOR TO AE AND (SAE).
     Route: 042
     Dates: start: 20230214
  3. ATEZOLIZUMAB [Concomitant]
     Active Substance: ATEZOLIZUMAB
     Indication: Non-small cell lung cancer metastatic
     Dosage: ON 07/MAR/2023, RECEIVED MOST RECENT DOSE OF ATEZOLIZUMAB PRIOR TO AE AND (SAE)TOTAL VOLUME PRIOR AE
     Route: 065
     Dates: start: 20230214
  4. ATEZOLIZUMAB [Concomitant]
     Active Substance: ATEZOLIZUMAB
     Dosage: ON 07/MAR/2023, RECEIVED MOST RECENT DOSE OF ATEZOLIZUMAB PRIOR TO AE AND (SAE)TOTAL VOLUME PRIOR AE
     Route: 065
     Dates: start: 20230214
  5. EMEND [Concomitant]
     Active Substance: APREPITANT
     Indication: Prophylaxis of nausea and vomiting
     Route: 065
     Dates: start: 20230214
  6. EMEND [Concomitant]
     Active Substance: APREPITANT
     Indication: Prophylaxis of nausea and vomiting
  7. FOLIC ACID [Concomitant]
     Active Substance: FOLIC ACID
     Indication: Product used for unknown indication
     Route: 065
     Dates: start: 20230208
  8. FOLIC ACID [Concomitant]
     Active Substance: FOLIC ACID
     Route: 065
     Dates: start: 20230208
  9. PEGFILGRASTIM [Concomitant]
     Active Substance: PEGFILGRASTIM
     Indication: Prophylaxis
     Route: 065
     Dates: start: 20230215
  10. PEGFILGRASTIM [Concomitant]
     Active Substance: PEGFILGRASTIM
     Route: 065
     Dates: start: 20230215
  11. PEMBROLIZUMAB [Concomitant]
     Active Substance: PEMBROLIZUMAB
     Indication: Non-small cell lung cancer metastatic
     Dosage: ON 07/MAR/2023, RECEIVED MOST RECENT DOSE OF PEMBROLIZUMAB PRIOR TO AE AND (SAE)TOTAL VOLUME PRIOR A
     Route: 065
     Dates: start: 20230214
  12. PEMBROLIZUMAB [Concomitant]
     Active Substance: PEMBROLIZUMAB
     Dosage: ON 07/MAR/2023, RECEIVED MOST RECENT DOSE OF PEMBROLIZUMAB PRIOR TO AE AND (SAE)TOTAL VOLUME PRIOR A
     Route: 065
     Dates: start: 20230214
  13. PRIMPERAN [Concomitant]
     Active Substance: METOCLOPRAMIDE HYDROCHLORIDE
     Indication: Nausea
     Route: 065
     Dates: start: 20230214, end: 202303
  14. PRIMPERAN [Concomitant]
     Active Substance: METOCLOPRAMIDE HYDROCHLORIDE
     Route: 065
     Dates: start: 20230214, end: 202303
  15. SODIUM BICARBONATE [Concomitant]
     Active Substance: SODIUM BICARBONATE
     Indication: Mouth ulceration
     Dosage: 1.4 %
     Route: 065
     Dates: start: 20230315
  16. Solupred [Concomitant]
     Indication: Prophylactic chemotherapy
     Dosage: 40.000MG QD
     Route: 065
     Dates: start: 20230213
  17. TIRAGOLUMAB [Concomitant]
     Active Substance: TIRAGOLUMAB
     Indication: Non-small cell lung cancer metastatic
     Dosage: ON 07/MAR/2023, RECEIVED MOST RECENT DOSE OF TIRAGOLUMAB PRIOR TO AE (ADVERSE EVENT) AND SERIOUS AE
     Route: 065
     Dates: start: 20230214
  18. TIRAGOLUMAB [Concomitant]
     Active Substance: TIRAGOLUMAB
     Dosage: ON 07/MAR/2023, RECEIVED MOST RECENT DOSE OF TIRAGOLUMAB PRIOR TO AE (ADVERSE EVENT) AND SERIOUS AE
     Route: 065
     Dates: start: 20230214
  19. TRAMADOL [Concomitant]
     Active Substance: TRAMADOL\TRAMADOL HYDROCHLORIDE
     Indication: Cancer pain
     Route: 065
     Dates: start: 202301
  20. TRAMADOL [Concomitant]
     Active Substance: TRAMADOL\TRAMADOL HYDROCHLORIDE
     Route: 065
     Dates: start: 202301
  21. ZOPICLONE [Concomitant]
     Active Substance: ZOPICLONE
     Indication: Insomnia
     Route: 065
     Dates: start: 202301
  22. ZOPICLONE [Concomitant]
     Active Substance: ZOPICLONE
     Route: 065
     Dates: start: 202301

REACTIONS (1)
  - Pneumoperitoneum [Fatal]

NARRATIVE: CASE EVENT DATE: 20230313
